FAERS Safety Report 9118636 (Version 2)
Quarter: 2013Q4

REPORT INFORMATION
  Report Type: Spontaneous
  Country: US (occurrence: US)
  Receive Date: 20130226
  Receipt Date: 20131231
  Transmission Date: 20140711
  Serious: Yes (Other)
  Sender: FDA-Public Use
  Company Number: US-BAYER-2013-024194

PATIENT
  Age: 27 Year
  Sex: Female

DRUGS (5)
  1. YAZ [Suspect]
     Dosage: UNK
     Dates: start: 200801
  2. YASMIN [Suspect]
     Dosage: UNK
     Dates: start: 200801
  3. OCELLA [Suspect]
     Dosage: UNK
     Dates: start: 200801
  4. HYDROCODONE/ACETAMINOPHEN [Concomitant]
     Dosage: 5MG/500MG 1-2 TABLETS EVERY 4-6 HOURS AS NEEDED
     Route: 048
  5. HYDROCODONE/ACETAMINOPHEN [Concomitant]
     Dosage: 7.5MG/500MG 1-2 TABLET EVERY 4-6 HOURS AS NEEDED
     Route: 048

REACTIONS (6)
  - Gallbladder injury [None]
  - Cholecystitis chronic [None]
  - Pain [None]
  - Fear of disease [None]
  - Injury [None]
  - Pain [None]
